FAERS Safety Report 7219149-3 (Version None)
Quarter: 2011Q1

REPORT INFORMATION
  Report Type: 
  Country: None (occurrence: None)
  Receive Date: 20110111
  Receipt Date: 20101230
  Transmission Date: 20110831
  Serious: Yes (Hospitalization, Other)
  Sender: FDA-Public Use
  Company Number: US-ELI_LILLY_AND_COMPANY-US201009004684

PATIENT
  Sex: Female

DRUGS (2)
  1. FORTEO [Suspect]
     Indication: OSTEOPOROSIS
     Dosage: 20 UG, DAILY (1/D)
     Dates: start: 20100601
  2. FORTEO [Suspect]
     Dosage: 20 UG, DAILY (1/D)

REACTIONS (8)
  - VISUAL IMPAIRMENT [None]
  - MUSCULOSKELETAL PAIN [None]
  - ARTHRALGIA [None]
  - SURGERY [None]
  - PAIN IN EXTREMITY [None]
  - MUSCLE SPASMS [None]
  - VIRAL INFECTION [None]
  - PNEUMONIA [None]
